FAERS Safety Report 10180166 (Version 1)
Quarter: 2014Q2

REPORT INFORMATION
  Report Type: Spontaneous
  Country: US (occurrence: US)
  Receive Date: 20140519
  Receipt Date: 20140519
  Transmission Date: 20141212
  Serious: No
  Sender: FDA-Public Use
  Company Number: US-AMGEN INC.-USASP2013085663

PATIENT
  Age: 69 Year
  Sex: Female

DRUGS (10)
  1. PROLIA [Suspect]
     Indication: OSTEOPOROSIS POSTMENOPAUSAL
     Dosage: UNK
     Route: 065
     Dates: start: 2011
  2. DHA [Concomitant]
  3. CALCIUM [Concomitant]
     Dosage: 2 A DAY
  4. FISH OIL [Concomitant]
  5. D3 [Concomitant]
  6. CRANBERRY                          /01512301/ [Concomitant]
     Dosage: 2 A DAY
  7. BABY ASPIRIN [Concomitant]
  8. PRAVASTATIN [Concomitant]
     Dosage: HS
  9. LISINOPRIL [Concomitant]
     Dosage: 30 MG, QD
  10. LATANOPROST [Concomitant]

REACTIONS (2)
  - Pain in jaw [Unknown]
  - Mastication disorder [Unknown]
